FAERS Safety Report 8819890 (Version 2)
Quarter: 2012Q4

REPORT INFORMATION
  Report Type: 
  Country: US (occurrence: US)
  Receive Date: 20121001
  Receipt Date: 20121009
  Transmission Date: 20130627
  Serious: Yes (Death)
  Sender: FDA-Public Use
  Company Number: US-B.I. PHARMACEUTICALS,INC./RIDGEFIELD-2012-BP-23847BP

PATIENT
  Sex: Male

DRUGS (16)
  1. PRADAXA [Suspect]
     Indication: ATRIAL FIBRILLATION
     Dosage: 300 mg
     Route: 048
     Dates: start: 20101206
  2. PRADAXA [Suspect]
     Dosage: 150 mg
     Route: 048
     Dates: start: 20120920
  3. OXYGEN [Concomitant]
  4. GABAPENTIN [Concomitant]
     Dosage: 300 mg
  5. ALLOPURINOL [Concomitant]
     Indication: GOUT
     Dosage: 300 mg
  6. ASPIRIN [Concomitant]
     Indication: CORONARY ARTERY DISEASE
     Dosage: 81 mg
  7. ASPIRIN [Concomitant]
     Indication: CARDIAC FAILURE CONGESTIVE
  8. GLIMEPIRIDE [Concomitant]
     Dosage: 2 mg
  9. CARVEDILOL [Concomitant]
     Dosage: 3.125 mg
  10. BUMEX [Concomitant]
     Dosage: 1 mg
  11. POTASSIUM [Concomitant]
     Dosage: 20 mEq
  12. LEVOTHYROXINE [Concomitant]
     Dosage: 175 mcg
  13. LYRICA [Concomitant]
     Dosage: 150 mg
  14. OMEPRAZOLE [Concomitant]
     Indication: GASTROOESOPHAGEAL REFLUX DISEASE
     Dosage: 20 mg
  15. ROPINEROLE [Concomitant]
     Dosage: 0.5 mg
  16. AMBIEN [Concomitant]
     Dosage: 5 mg

REACTIONS (1)
  - Concomitant disease progression [Fatal]
